FAERS Safety Report 8561789-3 (Version None)
Quarter: 2012Q3

REPORT INFORMATION
  Report Type: 
  Country: None (occurrence: None)
  Receive Date: 20120802
  Receipt Date: 20120726
  Transmission Date: 20120928
  Serious: No
  Sender: FDA-Public Use
  Company Number: US-B.I. PHARMACEUTICALS,INC./RIDGEFIELD-2011-BP-22071BP

PATIENT
  Sex: Female

DRUGS (23)
  1. PRADAXA [Suspect]
     Indication: ATRIAL FIBRILLATION
     Dosage: 300 MG
     Route: 048
     Dates: start: 20101201
  2. RESVERATROL [Concomitant]
     Indication: VITAMIN SUPPLEMENTATION
     Route: 048
  3. PRADAXA [Suspect]
     Indication: CEREBROVASCULAR ACCIDENT
     Dosage: 300 MG
     Route: 048
     Dates: start: 20110401
  4. COL-RITE [Concomitant]
     Indication: FAECES HARD
     Route: 048
  5. ASCORBIC ACID [Concomitant]
     Indication: FAECES HARD
     Route: 048
  6. FISH OIL [Concomitant]
     Indication: VITAMIN SUPPLEMENTATION
     Route: 048
  7. MULTI-VITAMIN [Concomitant]
  8. COMBIVENT [Suspect]
     Indication: DYSPNOEA
     Route: 055
     Dates: start: 20020101
  9. FUROSEMIDE [Concomitant]
     Dosage: 80 MG
     Route: 048
  10. COMBIVENT [Suspect]
     Indication: CHRONIC OBSTRUCTIVE PULMONARY DISEASE
  11. METOPROLOL TARTRATE [Concomitant]
     Indication: CARDIAC DISORDER
     Dosage: 200 MG
     Route: 048
     Dates: start: 20111201
  12. ASPIRIN [Concomitant]
     Indication: ANTICOAGULANT THERAPY
     Dosage: 81 MG
     Route: 048
  13. FLUCONAZOLE [Concomitant]
  14. FUROSEMIDE [Concomitant]
     Indication: FLUID RETENTION
     Dosage: 40 MG
     Route: 048
     Dates: start: 20101201
  15. VERAPAMIL [Concomitant]
     Indication: CARDIAC DISORDER
     Dosage: 240 MG
     Route: 048
  16. FLUTICASONE PROPIONATE [Concomitant]
     Indication: HYPERSENSITIVITY
  17. LEVOTHYROXINE SODIUM [Concomitant]
     Indication: THYROID DISORDER
     Dosage: 125 MG
     Route: 048
     Dates: start: 20101201
  18. LOVASTATIN [Concomitant]
     Indication: CARDIAC DISORDER
     Dosage: 40 MG
     Route: 048
  19. MEDICATION NOT FURTHER SPECIFIED [Concomitant]
     Indication: FAECES HARD
  20. POTASSIUM [Concomitant]
     Dosage: 40 MEQ
     Route: 048
     Dates: start: 20101201
  21. ALBUTEROL [Concomitant]
     Indication: DYSPNOEA
     Route: 055
  22. ALBUTEROL [Concomitant]
     Indication: ASTHMA
  23. COLON HEALTH [Concomitant]
     Indication: PROBIOTIC THERAPY
     Route: 048

REACTIONS (4)
  - HAEMATOMA [None]
  - HEADACHE [None]
  - DYSPNOEA [None]
  - CONTUSION [None]
